FAERS Safety Report 4959276-4 (Version None)
Quarter: 2006Q1

REPORT INFORMATION
  Report Type: 
  Country: None (occurrence: None)
  Receive Date: 20060130
  Receipt Date: 20050816
  Transmission Date: 20060701
  Serious: Yes (Other)
  Sender: FDA-Public Use
  Company Number: 142891USA

PATIENT
  Sex: Female

DRUGS (4)
  1. COPAXONE [Suspect]
     Indication: MULTIPLE SCLEROSIS
     Dates: start: 20050401
  2. LEXAPRO [Concomitant]
  3. AMBIEN [Concomitant]
  4. SINGULAIR [Concomitant]

REACTIONS (1)
  - ANAPHYLACTIC REACTION [None]
